FAERS Safety Report 19918517 (Version 5)
Quarter: 2021Q4

REPORT INFORMATION
  Report Type: Spontaneous
  Country: TW (occurrence: TW)
  Receive Date: 20211005
  Receipt Date: 20211210
  Transmission Date: 20220303
  Serious: Yes (Other)
  Sender: FDA-Public Use
  Company Number: TW-AMGEN-TWNSP2021149598

PATIENT
  Age: 57 Year
  Sex: Female

DRUGS (1)
  1. PROLIA [Suspect]
     Active Substance: DENOSUMAB
     Indication: Bone disorder
     Dosage: 60 MILLIGRAM, Q6MO
     Route: 058
     Dates: start: 20161130

REACTIONS (5)
  - Wrist fracture [Not Recovered/Not Resolved]
  - Fall [Unknown]
  - Drug ineffective [Unknown]
  - Off label use [Unknown]
  - Bone density decreased [Unknown]

NARRATIVE: CASE EVENT DATE: 20161130
